FAERS Safety Report 6493456-4 (Version None)
Quarter: 2009Q4

REPORT INFORMATION
  Report Type: 
  Country: None (occurrence: None)
  Receive Date: 20091214
  Receipt Date: 20091202
  Transmission Date: 20100525
  Serious: Yes (Other)
  Sender: FDA-Public Use
  Company Number: BR-PFIZER INC-2009304167

PATIENT
  Age: 51 Year
  Sex: Female

DRUGS (3)
  1. NEURONTIN [Suspect]
     Indication: FIBROMYALGIA
     Dosage: 400 MG, DAILY
     Route: 048
     Dates: start: 20091123, end: 20091123
  2. PURAN T4 [Concomitant]
     Indication: THYROID DISORDER
     Dosage: 50 MG, UNK
     Dates: start: 19890101
  3. TIBOLONE [Concomitant]
     Indication: MENOPAUSE
     Dosage: 25 MG, UNK
     Dates: start: 20020101

REACTIONS (5)
  - DIZZINESS [None]
  - DYSSTASIA [None]
  - NAUSEA [None]
  - POISONING [None]
  - SEDATION [None]
